FAERS Safety Report 6101119-X (Version None)
Quarter: 2009Q1

REPORT INFORMATION
  Report Type: 
  Country: None (occurrence: None)
  Receive Date: 20090227
  Receipt Date: 20090217
  Transmission Date: 20090719
  Serious: Yes (Hospitalization)
  Sender: FDA-Public Use
  Company Number: KV200900200

PATIENT
  Age: 58 Year
  Sex: Male

DRUGS (6)
  1. METOPROLOL SUCCINATE [Suspect]
     Indication: HYPERTENSION
     Dosage: 100 MG, QD, ORAL
     Route: 048
  2. LIPITOR [Concomitant]
  3. ACTOS [Concomitant]
  4. METFORMIN HCL [Concomitant]
  5. COUMADIN [Concomitant]
  6. GLIMEPIRIDE [Concomitant]

REACTIONS (2)
  - CHEST PAIN [None]
  - PRODUCT QUALITY ISSUE [None]
